FAERS Safety Report 14008732 (Version 1)
Quarter: 2017Q3

REPORT INFORMATION
  Report Type: Spontaneous
  Country: US (occurrence: US)
  Receive Date: 20170925
  Receipt Date: 20170925
  Transmission Date: 20171128
  Serious: Yes (Hospitalization)
  Sender: FDA-Public Use
  Company Number: US-PFIZER INC-2017405864

PATIENT
  Age: 72 Year

DRUGS (2)
  1. SOLU-MEDROL [Suspect]
     Active Substance: METHYLPREDNISOLONE SODIUM SUCCINATE
     Indication: PLASMA CELL MYELOMA
     Dosage: 1 G, CYCLIC (EVERY 4 WEEKS)
     Route: 042
     Dates: start: 20151120
  2. VELCADE [Concomitant]
     Active Substance: BORTEZOMIB
     Indication: PLASMA CELL MYELOMA
     Dosage: 1.6 MG/M2, CYCLIC (EVERY 28 DAYS)
     Route: 058
     Dates: start: 20150522

REACTIONS (4)
  - Dyspnoea [Unknown]
  - Chest pain [Recovered/Resolved]
  - Productive cough [Unknown]
  - Product use in unapproved indication [Unknown]

NARRATIVE: CASE EVENT DATE: 20160731
